FAERS Safety Report 7350457-1 (Version None)
Quarter: 2011Q1

REPORT INFORMATION
  Report Type: 
  Country: None (occurrence: None)
  Receive Date: 20110314
  Receipt Date: 20110301
  Transmission Date: 20110831
  Serious: Yes (Death, Hospitalization)
  Sender: FDA-Public Use
  Company Number: US-JNJFOC-20090803207

PATIENT
  Sex: Male

DRUGS (3)
  1. PREDNISONE TAB [Concomitant]
  2. REMICADE [Suspect]
     Indication: CROHN'S DISEASE
     Route: 042
     Dates: start: 20070401, end: 20080601
  3. REMICADE [Suspect]
     Route: 042
     Dates: start: 20070401, end: 20080601

REACTIONS (11)
  - METABOLIC ACIDOSIS [None]
  - HISTIOCYTOSIS HAEMATOPHAGIC [None]
  - CHOLANGITIS SCLEROSING [None]
  - BEHCET'S SYNDROME [None]
  - FOLLICULITIS [None]
  - NATURAL KILLER-CELL LEUKAEMIA [None]
  - EPSTEIN-BARR VIRUS INFECTION [None]
  - TRANSAMINASES INCREASED [None]
  - DERMATITIS [None]
  - HAEMORRHAGE [None]
  - EXTRANODAL NK/T-CELL LYMPHOMA, NASAL TYPE [None]
